FAERS Safety Report 13036275 (Version 1)
Quarter: 2016Q4

REPORT INFORMATION
  Report Type: Spontaneous
  Country: US (occurrence: US)
  Receive Date: 20161216
  Receipt Date: 20161216
  Transmission Date: 20170207
  Serious: No
  Sender: FDA-Public Use
  Company Number: US-GLAXOSMITHKLINE-US2016GSK186350

PATIENT
  Age: 55 Year
  Sex: Male

DRUGS (2)
  1. TANZEUM [Suspect]
     Active Substance: ALBIGLUTIDE
     Indication: GLYCOSYLATED HAEMOGLOBIN INCREASED
  2. TANZEUM [Suspect]
     Active Substance: ALBIGLUTIDE
     Indication: BLOOD GLUCOSE INCREASED
     Dosage: 50 MG, WE
     Route: 042
     Dates: start: 201602

REACTIONS (1)
  - Incorrect product storage [Unknown]

NARRATIVE: CASE EVENT DATE: 20161211
